FAERS Safety Report 13776524 (Version 1)
Quarter: 2017Q3

REPORT INFORMATION
  Report Type: Report from Study
  Country: US (occurrence: US)
  Receive Date: 20170720
  Receipt Date: 20170720
  Transmission Date: 20171127
  Serious: Yes (Hospitalization)
  Sender: FDA-Public Use
  Company Number: US-ACTELION-A-NJ2015-125557

PATIENT
  Age: 46 Year
  Sex: Female
  Weight: 100.23 kg

DRUGS (5)
  1. ADCIRCA [Suspect]
     Active Substance: TADALAFIL
     Indication: PRODUCT USED FOR UNKNOWN INDICATION
     Route: 065
  2. OPSUMIT [Suspect]
     Active Substance: MACITENTAN
     Dosage: UNK
     Route: 048
  3. OPSUMIT [Suspect]
     Active Substance: MACITENTAN
     Indication: PULMONARY ARTERIAL HYPERTENSION
     Dosage: 10 MG, QD
     Route: 048
     Dates: start: 20150123
  4. COUMADIN [Concomitant]
     Active Substance: WARFARIN SODIUM
  5. REMODULIN [Suspect]
     Active Substance: TREPROSTINIL
     Indication: PRODUCT USED FOR UNKNOWN INDICATION
     Route: 065

REACTIONS (19)
  - Diarrhoea [Unknown]
  - Application site vesicles [Unknown]
  - Headache [Unknown]
  - Hypotension [Unknown]
  - Wound [Unknown]
  - Complication associated with device [Unknown]
  - Application site pain [Unknown]
  - Lung transplant [Unknown]
  - Dermatitis contact [Unknown]
  - Dyspnoea [Unknown]
  - Loss of consciousness [Unknown]
  - Catheter site discolouration [Unknown]
  - Chest discomfort [Unknown]
  - Dizziness [Unknown]
  - Feeling abnormal [Unknown]
  - Application site pruritus [Unknown]
  - Application site rash [Unknown]
  - Catheter management [Unknown]
  - Nasopharyngitis [Unknown]

NARRATIVE: CASE EVENT DATE: 201510
